FAERS Safety Report 23456627 (Version 2)
Quarter: 2024Q2

REPORT INFORMATION
  Report Type: Report from Study
  Country: TW (occurrence: TW)
  Receive Date: 20240130
  Receipt Date: 20240430
  Transmission Date: 20240716
  Serious: Yes (Hospitalization, Other)
  Sender: FDA-Public Use
  Company Number: TW-ABBVIE-5610727

PATIENT
  Age: 66 Year
  Sex: Male

DRUGS (2)
  1. SKYRIZI [Suspect]
     Active Substance: RISANKIZUMAB-RZAA
     Indication: Psoriasis
     Dosage: 150MG/Q3M
     Route: 058
     Dates: start: 20221125
  2. SKYRIZI [Suspect]
     Active Substance: RISANKIZUMAB-RZAA
     Dosage: FREQUENCY TEXT: 150MG/STAT
     Route: 058
     Dates: start: 20221028, end: 20221028

REACTIONS (7)
  - Vision blurred [Unknown]
  - Cataract [Recovered/Resolved]
  - Cataract [Recovered/Resolved]
  - Epiretinal membrane [Recovered/Resolved]
  - Bronchitis [Recovered/Resolved]
  - Onychomycosis [Unknown]
  - Paronychia [Unknown]

NARRATIVE: CASE EVENT DATE: 20231117
